FAERS Safety Report 11647844 (Version 1)
Quarter: 2015Q4

REPORT INFORMATION
  Report Type: Spontaneous
  Country: US (occurrence: None)
  Receive Date: 20151020
  Receipt Date: 20151020
  Transmission Date: 20160304
  Serious: Yes (Other)
  Sender: FDA-Public Use
  Company Number: None

PATIENT
  Age: 44 Year
  Sex: Female
  Weight: 165.11 kg

DRUGS (19)
  1. NUVIGIL/ARMODAFINIL [Concomitant]
  2. DONEPEZIL/ARICEPT [Concomitant]
  3. VALERIAN EXTRACT WALGREENS SLEEP AID [Concomitant]
  4. ULTRAM [Concomitant]
     Active Substance: TRAMADOL HYDROCHLORIDE
  5. TRAZODONE/OLEPTRO [Concomitant]
  6. DIPHENHYDRAMINE HCL [Concomitant]
     Active Substance: DIPHENHYDRAMINE HYDROCHLORIDE
  7. VENLAFAXINE/EFFEXOR ER [Concomitant]
  8. IBUPROFEN/ADVIL SCHIFF MELATONIN ULTRA [Concomitant]
  9. L-THEANINE [Concomitant]
     Active Substance: DIETARY SUPPLEMENT
  10. TOPIRAMATE. [Suspect]
     Active Substance: TOPIRAMATE
     Indication: HEADACHE
     Dosage: 1 PILL
     Route: 048
     Dates: start: 20151001, end: 20151003
  11. DOXYLAMINE SUCCINATE. [Concomitant]
     Active Substance: DOXYLAMINE SUCCINATE
  12. GABA [Concomitant]
     Active Substance: .GAMMA.-AMINOBUTYRIC ACID
  13. CHAMOMILE EXTRACT [Concomitant]
  14. MELATONIN [Concomitant]
     Active Substance: MELATONIN
  15. TOPIRAMATE. [Suspect]
     Active Substance: TOPIRAMATE
     Indication: CRANIOCEREBRAL INJURY
     Dosage: 1 PILL
     Route: 048
     Dates: start: 20151001, end: 20151003
  16. ALPRAZOLAM/XANAX [Concomitant]
  17. LYRICA/PREGABALIN [Concomitant]
  18. VITAMIN B6 [Concomitant]
     Active Substance: PYRIDOXINE HYDROCHLORIDE
  19. CALCIUM [Concomitant]
     Active Substance: CALCIUM

REACTIONS (7)
  - Scab [None]
  - Dry skin [None]
  - Arthralgia [None]
  - Alopecia [None]
  - Pain [None]
  - Drug hypersensitivity [None]
  - Myalgia [None]

NARRATIVE: CASE EVENT DATE: 20151001
